FAERS Safety Report 21717228 (Version 1)
Quarter: 2022Q4

REPORT INFORMATION
  Report Type: Spontaneous
  Country: US (occurrence: US)
  Receive Date: 20221212
  Receipt Date: 20221212
  Transmission Date: 20230113
  Serious: No
  Sender: FDA-Public Use
  Company Number: US-009507513-2212USA001286

PATIENT
  Age: 42 Year
  Sex: Female

DRUGS (2)
  1. KEYTRUDA [Suspect]
     Active Substance: PEMBROLIZUMAB
     Indication: Leiomyosarcoma metastatic
     Dosage: UNK
     Dates: start: 2020
  2. TEMODAR [Suspect]
     Active Substance: TEMOZOLOMIDE
     Indication: Leiomyosarcoma metastatic
     Dosage: UNK
     Route: 048
     Dates: start: 2019, end: 2020

REACTIONS (1)
  - Product use in unapproved indication [Unknown]

NARRATIVE: CASE EVENT DATE: 20190101
